FAERS Safety Report 13468712 (Version 1)
Quarter: 2017Q2

REPORT INFORMATION
  Report Type: Spontaneous
  Country: CR (occurrence: CR)
  Receive Date: 20170421
  Receipt Date: 20170421
  Transmission Date: 20170830
  Serious: Yes (Other)
  Sender: FDA-Public Use
  Company Number: CR-PFIZER INC-2017172609

PATIENT
  Age: 38 Year
  Sex: Female

DRUGS (1)
  1. ALTRULINE [Suspect]
     Active Substance: SERTRALINE HYDROCHLORIDE
     Dosage: 50 MG, UNK

REACTIONS (4)
  - Mouth haemorrhage [Unknown]
  - Feeling hot [Unknown]
  - Epistaxis [Unknown]
  - Vaginal haemorrhage [Unknown]
